FAERS Safety Report 15698827 (Version 1)
Quarter: 2018Q4

REPORT INFORMATION
  Report Type: Spontaneous
  Country: US (occurrence: US)
  Receive Date: 20181207
  Receipt Date: 20181207
  Transmission Date: 20190205
  Serious: No
  Sender: FDA-Public Use
  Company Number: US-PFIZER INC-2018498775

PATIENT
  Age: 95 Year
  Sex: Female
  Weight: 62 kg

DRUGS (1)
  1. GABAPENTIN. [Suspect]
     Active Substance: GABAPENTIN
     Dosage: 600 MG, 3 TIMES/DAY (IN THE MORNING, IN THE AFTERNOON, AND AT NIGHT)
     Route: 048

REACTIONS (1)
  - Drug ineffective [Unknown]
